FAERS Safety Report 8590016-6 (Version None)
Quarter: 2012Q3

REPORT INFORMATION
  Report Type: 
  Country: None (occurrence: None)
  Receive Date: 20120813
  Receipt Date: 20120730
  Transmission Date: 20120928
  Serious: Yes (Other)
  Sender: FDA-Public Use
  Company Number: US-ROCHE-1099515

PATIENT
  Age: 7 Year
  Sex: Female

DRUGS (7)
  1. TACROLIMUS [Suspect]
     Indication: CONGENITAL NEPHROTIC SYNDROME
  2. PREDNISONE TAB [Suspect]
  3. DACLIZUMAB [Suspect]
     Indication: CONGENITAL NEPHROTIC SYNDROME
  4. MYCOPHENOLATE MOFETIL [Suspect]
     Indication: CONGENITAL NEPHROTIC SYNDROME
  5. MYCOPHENOLATE MOFETIL [Suspect]
  6. RITUXIMAB [Suspect]
     Indication: CONGENITAL NEPHROTIC SYNDROME
  7. PREDNISONE TAB [Suspect]
     Indication: CONGENITAL NEPHROTIC SYNDROME

REACTIONS (4)
  - PROTEINURIA [None]
  - HERPES ZOSTER [None]
  - URINARY TRACT INFECTION [None]
  - VESICOURETERIC REFLUX [None]
